FAERS Safety Report 9828000 (Version 3)
Quarter: 2014Q1

REPORT INFORMATION
  Report Type: Report from Study
  Country: US (occurrence: US)
  Receive Date: 20140117
  Receipt Date: 20140129
  Transmission Date: 20141002
  Serious: Yes (Hospitalization, Other)
  Sender: FDA-Public Use
  Company Number: US-ACTELION-A-US2013-92395

PATIENT
  Age: 84 Year
  Sex: Female

DRUGS (2)
  1. TRACLEER [Suspect]
     Indication: PULMONARY ARTERIAL HYPERTENSION
     Dosage: UNK
     Route: 048
     Dates: start: 200409
  2. COUMADIN [Concomitant]
     Dosage: UNK

REACTIONS (4)
  - Atrial fibrillation [Unknown]
  - Pneumonia [Recovering/Resolving]
  - Respiratory tract congestion [Unknown]
  - Cough [Unknown]
